FAERS Safety Report 14830216 (Version 1)
Quarter: 2018Q2

REPORT INFORMATION
  Report Type: Spontaneous
  Country: DE (occurrence: DE)
  Receive Date: 20180430
  Receipt Date: 20180430
  Transmission Date: 20180711
  Serious: Yes (Hospitalization)
  Sender: FDA-Public Use
  Company Number: DE-009507513-1804DEU009938

PATIENT
  Age: 66 Year
  Sex: Female

DRUGS (5)
  1. MIRTAZAPINE. [Suspect]
     Active Substance: MIRTAZAPINE
     Dosage: 15 MG, 0-0-1-0
  2. ACETAMINOPHEN (+) IBUPROFEN [Concomitant]
     Dosage: 400 MG, UNK
  3. LEVOTHYROXINE SODIUM. [Concomitant]
     Active Substance: LEVOTHYROXINE SODIUM
     Dosage: 75 MG, UNK
  4. RIOPAN (MAGALDRAT) [Concomitant]
     Active Substance: MAGALDRATE
     Dosage: NK
  5. FORADIL [Concomitant]
     Active Substance: FORMOTEROL FUMARATE
     Dosage: UNK MG, UNK

REACTIONS (2)
  - Fracture [Unknown]
  - Fall [Unknown]
